FAERS Safety Report 8583922-X (Version None)
Quarter: 2012Q3

REPORT INFORMATION
  Report Type: 
  Country: None (occurrence: None)
  Receive Date: 20120810
  Receipt Date: 20120806
  Transmission Date: 20120928
  Serious: Yes (Hospitalization, Disabling, Other)
  Sender: FDA-Public Use
  Company Number: US-009507513-1106USA04019

PATIENT

DRUGS (9)
  1. MK-9278 [Concomitant]
     Dosage: UNK UNK, QD
  2. FOSAMAX [Suspect]
     Dosage: 70 MG, UNK
     Route: 048
     Dates: start: 20080516, end: 20101201
  3. IMITREX [Concomitant]
     Dosage: 25 MG, PRN
     Dates: start: 19950101
  4. CALCIUM (UNSPECIFIED) (+) VITAMIN D (UNSPECIFIED) [Concomitant]
     Dosage: 600 MG, BID
  5. MK-9359 [Concomitant]
     Dosage: 25 MG, QD
     Dates: start: 20001001, end: 20020101
  6. CLARITIN [Concomitant]
     Route: 048
     Dates: start: 20090101
  7. FOSAMAX [Suspect]
     Indication: OSTEOPENIA
     Dosage: 70 MG, QW
     Route: 048
     Dates: start: 20020725, end: 20080501
  8. NIACIN [Concomitant]
     Dates: start: 20070101
  9. ZESTORETIC [Concomitant]
     Route: 048
     Dates: start: 20040701

REACTIONS (17)
  - FRACTURE DELAYED UNION [None]
  - PAIN IN EXTREMITY [None]
  - CYST [None]
  - BRONCHITIS [None]
  - ARTHROPATHY [None]
  - HYPERSENSITIVITY [None]
  - CHONDROPATHY [None]
  - HYPERCHOLESTEROLAEMIA [None]
  - OROPHARYNGEAL PAIN [None]
  - FALL [None]
  - ARTHRITIS [None]
  - COUGH [None]
  - GASTRITIS [None]
  - FEMUR FRACTURE [None]
  - GASTROOESOPHAGEAL REFLUX DISEASE [None]
  - LACERATION [None]
  - FINGER AMPUTATION [None]
